FAERS Safety Report 6296679-2 (Version None)
Quarter: 2009Q3

REPORT INFORMATION
  Report Type: 
  Country: None (occurrence: None)
  Receive Date: 20090804
  Receipt Date: 20090724
  Transmission Date: 20100115
  Serious: Yes (Hospitalization)
  Sender: FDA-Public Use
  Company Number: US-NOVOPROD-289762

PATIENT
  Age: 22 Year
  Sex: Male
  Weight: 95 kg

DRUGS (3)
  1. NOVOSEVEN RT [Suspect]
     Indication: FACTOR VII DEFICIENCY
     Dosage: 3 MG/KG EVERY 4 HRS
     Route: 042
     Dates: start: 20090723, end: 20090724
  2. NOVOSEVEN RT [Suspect]
     Dosage: 3 MG/KG EVERY 4 HRS
     Route: 042
     Dates: start: 20090723, end: 20090724
  3. ANCEF                              /00288502/ [Concomitant]
     Indication: PROPHYLAXIS

REACTIONS (1)
  - INTERNATIONAL NORMALISED RATIO INCREASED [None]
